FAERS Safety Report 12188887 (Version 1)
Quarter: 2016Q1

REPORT INFORMATION
  Report Type: Spontaneous
  Country: US (occurrence: US)
  Receive Date: 20160317
  Receipt Date: 20160317
  Transmission Date: 20160526
  Serious: No
  Sender: FDA-Public Use
  Company Number: US-PERRIGO-15US007009

PATIENT
  Age: 64 Year
  Sex: Male
  Weight: 58.96 kg

DRUGS (2)
  1. TESTOSTERONE CYPIONATE. [Suspect]
     Active Substance: TESTOSTERONE CYPIONATE
     Indication: BLOOD TESTOSTERONE DECREASED
     Dosage: 60 MG, SINGLE
     Route: 030
     Dates: start: 20150607, end: 20150607
  2. TESTOSTERONE CYPIONATE. [Suspect]
     Active Substance: TESTOSTERONE CYPIONATE
     Dosage: 60 MG, SINGLE
     Route: 030
     Dates: start: 20150621, end: 20150621

REACTIONS (2)
  - Drug administered at inappropriate site [Recovered/Resolved]
  - Condition aggravated [Not Recovered/Not Resolved]

NARRATIVE: CASE EVENT DATE: 20150607
